FAERS Safety Report 9736065 (Version 1)
Quarter: 2013Q4

REPORT INFORMATION
  Report Type: Spontaneous
  Country: US (occurrence: US)
  Receive Date: 20131206
  Receipt Date: 20131206
  Transmission Date: 20140711
  Serious: Yes (Hospitalization)
  Sender: FDA-Public Use
  Company Number: US-GLAXOSMITHKLINE-A1051848A

PATIENT
  Sex: Male

DRUGS (6)
  1. ADVAIR [Suspect]
     Indication: CHRONIC OBSTRUCTIVE PULMONARY DISEASE
     Dosage: 1PUFF TWICE PER DAY
     Route: 055
  2. NORVASC [Suspect]
  3. ASPIRIN [Suspect]
  4. LIPITOR [Concomitant]
  5. ATROVENT [Concomitant]
  6. INTAL [Concomitant]

REACTIONS (7)
  - Diverticulitis [Recovered/Resolved with Sequelae]
  - Food poisoning [Recovered/Resolved with Sequelae]
  - Colitis [Recovered/Resolved with Sequelae]
  - Gastritis [Recovered/Resolved with Sequelae]
  - Tooth disorder [Recovered/Resolved with Sequelae]
  - Tooth loss [Not Recovered/Not Resolved]
  - Increased tendency to bruise [Not Recovered/Not Resolved]
